FAERS Safety Report 10880580 (Version 1)
Quarter: 2015Q1

REPORT INFORMATION
  Report Type: Spontaneous
  Country: FR (occurrence: FR)
  Receive Date: 20150303
  Receipt Date: 20150303
  Transmission Date: 20150721
  Serious: Yes (Hospitalization)
  Sender: FDA-Public Use
  Company Number: FR-ACCORD-029034

PATIENT
  Age: 57 Year
  Sex: Male

DRUGS (5)
  1. VECTIBIX [Suspect]
     Active Substance: PANITUMUMAB
     Indication: COLORECTAL CANCER METASTATIC
     Dosage: 216 MG IN EACH WEEKS
     Route: 042
     Dates: start: 20140909, end: 20141104
  2. IRINOTECAN MYLAN [Suspect]
     Active Substance: IRINOTECAN
     Indication: COLORECTAL CANCER METASTATIC
     Dosage: 320 MG EACH 2 WEEKS
     Route: 042
     Dates: start: 20140909, end: 20141104
  3. LEVOFOLINATE DE CALCIUM ZENTIVA [Suspect]
     Active Substance: LEVOLEUCOVORIN CALCIUM
     Indication: COLORECTAL CANCER METASTATIC
     Dosage: 370 MG EACH 2 WEEKS
     Route: 042
     Dates: start: 20140909, end: 20141104
  4. FLUOROURACIL ACCORD [Suspect]
     Active Substance: FLUOROURACIL
     Indication: COLORECTAL CANCER METASTATIC
     Dosage: 2650 MG EACH 2 WEEKS
     Route: 042
     Dates: start: 20140909, end: 20141104
  5. DOXYCYCLINE. [Suspect]
     Active Substance: DOXYCYCLINE
     Indication: PRODUCT USED FOR UNKNOWN INDICATION
     Route: 048
     Dates: start: 20140904, end: 20141104

REACTIONS (6)
  - Rash vesicular [Recovered/Resolved]
  - Rash erythematous [Not Recovered/Not Resolved]
  - Pruritus [Recovering/Resolving]
  - Pyrexia [Recovered/Resolved]
  - Impetigo [Unknown]
  - Burning sensation [Not Recovered/Not Resolved]

NARRATIVE: CASE EVENT DATE: 20141109
